FAERS Safety Report 9132781 (Version 1)
Quarter: 2013Q1

REPORT INFORMATION
  Report Type: Report from Study
  Country: US (occurrence: US)
  Receive Date: 20130301
  Receipt Date: 20130301
  Transmission Date: 20140127
  Serious: Yes (Death, Hospitalization)
  Sender: FDA-Public Use
  Company Number: PHHY2013US020144

PATIENT
  Age: 59 Year
  Sex: Male
  Weight: 70.3 kg

DRUGS (9)
  1. VANCOMYCIN [Suspect]
     Dosage: 1750 MG, QD
     Route: 042
     Dates: start: 20110123, end: 20110123
  2. VANCOMYCIN [Suspect]
     Dosage: 1000 MG, UNK
     Route: 042
     Dates: start: 20110124, end: 20110124
  3. VANCOMYCIN [Suspect]
     Dosage: 750 MG, Q12H
     Route: 042
     Dates: start: 20110125, end: 20110127
  4. VANCOMYCIN [Suspect]
     Dosage: UNK
     Route: 042
     Dates: start: 20110127, end: 20130201
  5. ROCEPHIN [Concomitant]
  6. GENTAMICIN [Concomitant]
  7. NAFCILLIN [Concomitant]
  8. VANCOCIN [Concomitant]
  9. FLAGYL [Concomitant]

REACTIONS (1)
  - Endocarditis bacterial [Fatal]
